FAERS Safety Report 6935969-4 (Version None)
Quarter: 2010Q3

REPORT INFORMATION
  Report Type: 
  Country: None (occurrence: None)
  Receive Date: 20100816
  Receipt Date: 20100330
  Transmission Date: 20110219
  Serious: Yes (Other)
  Sender: FDA-Public Use
  Company Number: US-WYE-H14376010

PATIENT
  Age: 47 Year
  Sex: Female

DRUGS (2)
  1. TYGACIL [Suspect]
     Indication: INFECTION
     Dosage: 100 MG, INTRAVENOUS
     Route: 042
     Dates: start: 20090101
  2. MINOCYCLINE HCL [Concomitant]

REACTIONS (1)
  - INFECTION [None]
